FAERS Safety Report 11929830 (Version 1)
Quarter: 2016Q1

REPORT INFORMATION
  Report Type: Spontaneous
  Country: CN (occurrence: CN)
  Receive Date: 20160120
  Receipt Date: 20160120
  Transmission Date: 20160526
  Serious: Yes (Other)
  Sender: FDA-Public Use
  Company Number: CN-BRISTOL-MYERS SQUIBB COMPANY-BMS-2016-003389

PATIENT
  Age: 31 Year
  Sex: Male

DRUGS (3)
  1. CISPLATIN. [Suspect]
     Active Substance: CISPLATIN
     Indication: PENILE SQUAMOUS CELL CARCINOMA
     Dosage: 40 MG, Q2WK
     Route: 065
  2. CETUXIMAB [Suspect]
     Active Substance: CETUXIMAB
     Indication: PENILE SQUAMOUS CELL CARCINOMA
     Dosage: 800 MG, Q2WK
     Route: 065
  3. PACLITAXEL. [Suspect]
     Active Substance: PACLITAXEL
     Indication: PENILE SQUAMOUS CELL CARCINOMA
     Dosage: 210 MG, Q2WK
     Route: 065

REACTIONS (4)
  - Haemorrhage [Unknown]
  - Rash [Unknown]
  - Off label use [Unknown]
  - Gastrointestinal disorder [Unknown]
